FAERS Safety Report 5280877-0 (Version None)
Quarter: 2007Q1

REPORT INFORMATION
  Report Type: 
  Country: None (occurrence: None)
  Receive Date: 20070329
  Receipt Date: 20070317
  Transmission Date: 20070707
  Serious: Yes (Other)
  Sender: FDA-Public Use
  Company Number: US-PFIZER INC-2007023644

PATIENT
  Sex: Male
  Weight: 72.6 kg

DRUGS (2)
  1. CHANTIX [Suspect]
     Indication: EX-SMOKER
  2. IMITREX [Concomitant]
     Route: 048

REACTIONS (1)
  - MIGRAINE [None]
